FAERS Safety Report 25153535 (Version 1)
Quarter: 2025Q2

REPORT INFORMATION
  Report Type: Spontaneous
  Country: IL (occurrence: IL)
  Receive Date: 20250403
  Receipt Date: 20250403
  Transmission Date: 20250717
  Serious: Yes (Life-Threatening, Other)
  Sender: NOVARTIS
  Company Number: IL-002147023-NVSC2025IL054758

PATIENT
  Age: 16 Year
  Sex: Female

DRUGS (1)
  1. KESIMPTA [Suspect]
     Active Substance: OFATUMUMAB
     Indication: Relapsing-remitting multiple sclerosis
     Dosage: 50 MILLIGRAM PER MILLILITRE, Q4W (20 MG OFATUMUMAB IN 0.4 ML SOLUTION)
     Route: 065

REACTIONS (1)
  - Lymphopenia [Unknown]
